FAERS Safety Report 4896074-4 (Version None)
Quarter: 2005Q4

REPORT INFORMATION
  Report Type: 
  Country: None (occurrence: None)
  Receive Date: 20051220
  Receipt Date: 20050824
  Transmission Date: 20060501
  Serious: Yes (Death, Life-Threatening, Hospitalization)
  Sender: FDA-Public Use
  Company Number: US147686

PATIENT
  Age: 83 Year
  Sex: Male
  Weight: 50 kg

DRUGS (11)
  1. ENBREL [Suspect]
     Indication: RHEUMATOID ARTHRITIS
     Dosage: 25 MG, 2 IN 1 WEEKS, SC
     Route: 058
     Dates: start: 20041019, end: 20050801
  2. OXYCODONE [Concomitant]
  3. AMLODIPINE BESYLATE [Concomitant]
  4. TEMAZEPAM [Concomitant]
  5. ALENDRONATE SODIUM [Concomitant]
  6. CYANOCOBALAMIN [Concomitant]
  7. LEVOTHYROXINE SODIUM [Concomitant]
  8. HYDROXYCHLOROQUINE SULFATE [Concomitant]
  9. WARFARIN SODIUM [Concomitant]
  10. OXYBUTYNIN [Concomitant]
  11. TPN [Concomitant]

REACTIONS (2)
  - PNEUMONIA [None]
  - STAPHYLOCOCCAL SEPSIS [None]
